FAERS Safety Report 8919375 (Version 1)
Quarter: 2012Q4

REPORT INFORMATION
  Report Type: Report from Study
  Country: JP (occurrence: JP)
  Receive Date: 20121121
  Receipt Date: 20121121
  Transmission Date: 20130627
  Serious: Yes (Other)
  Sender: FDA-Public Use
  Company Number: JP-VERTEX PHARMACEUTICAL INC.-2012-024877

PATIENT
  Age: 54 Year
  Sex: Female

DRUGS (14)
  1. VX-950 (TELAPREVIR) [Suspect]
     Indication: CHRONIC HEPATITIS C
     Dosage: 1500 mg, qd
     Route: 048
     Dates: start: 20120904, end: 20120906
  2. VX-950 (TELAPREVIR) [Suspect]
     Dosage: 1500 mg, qd
     Route: 048
     Dates: start: 20120910, end: 20120912
  3. VX-950 (TELAPREVIR) [Suspect]
     Dosage: 1000 mg, qd
     Route: 048
     Dates: start: 20120913, end: 20120923
  4. VX-950 (TELAPREVIR) [Suspect]
     Dosage: 500 mg, qd
     Route: 048
     Dates: start: 20121022
  5. RIBAVIRIN [Suspect]
     Indication: CHRONIC HEPATITIS C
     Dosage: 400 mg, qd
     Route: 048
     Dates: end: 20120917
  6. RIBAVIRIN [Suspect]
     Dosage: 200 mg, qd
     Route: 048
     Dates: start: 20120918, end: 20120930
  7. RIBAVIRIN [Suspect]
     Dosage: 200 mg, qd
     Route: 048
     Dates: start: 20121022
  8. PEGINTERFERON ALFA-2B [Suspect]
     Indication: CHRONIC HEPATITIS C
     Dosage: 60 ?g/kg, qw
     Route: 058
     Dates: end: 20120910
  9. PEGINTERFERON ALFA-2B [Suspect]
     Dosage: 40 ?g, qw
     Route: 058
     Dates: start: 20120911, end: 20120917
  10. PEGINTERFERON ALFA-2B [Suspect]
     Dosage: 60 ?g, qw
     Route: 058
     Dates: start: 20120918
  11. URSO                               /00465701/ [Concomitant]
     Dosage: 600 mg, qd
     Route: 048
  12. ALLOPURINOL [Concomitant]
     Dosage: 200 mg, qd
     Route: 048
     Dates: start: 20120904
  13. ALLEGRA [Concomitant]
     Dosage: 120 mg, qd
     Route: 048
     Dates: start: 20120906
  14. ANTEBATE [Concomitant]
     Dosage: UNK
     Route: 061
     Dates: start: 20120906, end: 20121007

REACTIONS (1)
  - White blood cell count decreased [Unknown]
